FAERS Safety Report 13975397 (Version 1)
Quarter: 2017Q3

REPORT INFORMATION
  Report Type: Spontaneous
  Country: US (occurrence: US)
  Receive Date: 20170915
  Receipt Date: 20170915
  Transmission Date: 20171128
  Serious: No
  Sender: FDA-Public Use
  Company Number: US-BAYER-2017-177162

PATIENT
  Age: 88 Year
  Sex: Male

DRUGS (1)
  1. MIRALAX [Suspect]
     Active Substance: POLYETHYLENE GLYCOL 3350
     Indication: GASTROINTESTINAL DISORDER
     Dosage: UNK 1 DOSE A DAY FOR 7 DAYS
     Route: 048
     Dates: start: 20170905, end: 20170911

REACTIONS (2)
  - Discomfort [None]
  - Rectal discharge [Unknown]
